FAERS Safety Report 21464243 (Version 3)
Quarter: 2022Q4

REPORT INFORMATION
  Report Type: Report from Study
  Country: US (occurrence: US)
  Receive Date: 20221017
  Receipt Date: 20221129
  Transmission Date: 20230112
  Serious: No
  Sender: FDA-Public Use
  Company Number: US-ABBVIE-22K-163-4521490-00

PATIENT
  Sex: Female

DRUGS (1)
  1. RINVOQ [Suspect]
     Active Substance: UPADACITINIB
     Indication: Gastrointestinal disorder
     Dosage: 45 MILLIGRAM
     Route: 048

REACTIONS (4)
  - Product residue present [Unknown]
  - Off label use [Unknown]
  - Product solubility abnormal [Unknown]
  - Colonoscopy [Unknown]

NARRATIVE: CASE EVENT DATE: 20220101
